FAERS Safety Report 19585881 (Version 3)
Quarter: 2021Q3

REPORT INFORMATION
  Report Type: Report from Study
  Country: FR (occurrence: FR)
  Receive Date: 20210720
  Receipt Date: 20210921
  Transmission Date: 20211014
  Serious: Yes (Death, Hospitalization)
  Sender: FDA-Public Use
  Company Number: FR-009507513-2106FRA002706

PATIENT
  Age: 69 Year
  Sex: Male
  Weight: 69 kg

DRUGS (16)
  1. PEMBROLIZUMAB. [Suspect]
     Active Substance: PEMBROLIZUMAB
     Indication: SQUAMOUS CELL CARCINOMA
     Dosage: 200 MILLIGRAM; FREQUENCY NOT REPORTED
     Route: 042
     Dates: start: 20210526, end: 20210526
  2. VORINOSTAT [Suspect]
     Active Substance: VORINOSTAT
     Indication: SQUAMOUS CELL CARCINOMA
     Dosage: 300 MILLIGRAM; FREQUENCY NOT REPORTED
     Route: 048
     Dates: start: 20210414, end: 2021
  3. ALLOPURINOL. [Concomitant]
     Active Substance: ALLOPURINOL
     Indication: GOUT
     Dosage: 100 MILLIGRAM, QD
     Dates: start: 2019
  4. LEVOTHYROX [Concomitant]
     Active Substance: LEVOTHYROXINE
     Indication: HYPOTHYROIDISM
     Dosage: 50 MILLIGRAM, QD
     Dates: start: 2016
  5. DAPTOMYCIN. [Suspect]
     Active Substance: DAPTOMYCIN
     Dosage: UNK
     Dates: start: 20210605, end: 20210606
  6. CEFAZOLINE [CEFAZOLIN] [Suspect]
     Active Substance: CEFAZOLIN
     Dosage: UNK
     Dates: start: 20210605
  7. GENTAMYCINE [GENTAMICIN] [Suspect]
     Active Substance: GENTAMICIN
     Dosage: UNK
     Dates: start: 20210605, end: 20210605
  8. VANCOMYCINE [VANCOMYCIN] [Suspect]
     Active Substance: VANCOMYCIN
     Dosage: UNK
     Dates: start: 20210605
  9. PEMBROLIZUMAB. [Suspect]
     Active Substance: PEMBROLIZUMAB
     Indication: METASTATIC SQUAMOUS CELL CARCINOMA
     Dosage: 200 MILLIGRAM; FREQUENCY NOT REPORTED
     Route: 042
     Dates: start: 20210414, end: 2021
  10. VORINOSTAT [Suspect]
     Active Substance: VORINOSTAT
     Indication: METASTATIC SQUAMOUS CELL CARCINOMA
     Dosage: 300 MILLIGRAM; FREQUENCY NOT REPORTED
     Route: 048
     Dates: start: 20210616, end: 20210616
  11. BISOPROLOL [Concomitant]
     Active Substance: BISOPROLOL
     Indication: HYPERTENSION
     Dosage: 5 MILLIGRAM, QD
     Dates: start: 2010
  12. LASILIX [FUROSEMIDE] [Concomitant]
     Active Substance: FUROSEMIDE
     Indication: HYPERTENSION
     Dosage: 20 MILLIGRAM, QD
     Dates: start: 2010
  13. PERINDOPRIL [Concomitant]
     Active Substance: PERINDOPRIL
     Indication: HYPERTENSION
     Dosage: 8 MILLIGRAM, QD
     Dates: start: 2010
  14. XARELTO [Concomitant]
     Active Substance: RIVAROXABAN
     Indication: ARRHYTHMIA
     Dosage: 20 MILLIGRAM, QD
     Dates: start: 2010
  15. KARDEGIC [Concomitant]
     Active Substance: ASPIRIN DL-LYSINE
     Dosage: 75 MILLIGRAM, QD
  16. STILNOX [Concomitant]
     Active Substance: ZOLPIDEM TARTRATE
     Dosage: 10 MILLIGRAM, QD

REACTIONS (2)
  - Device related infection [Recovered/Resolved]
  - Shock [Fatal]

NARRATIVE: CASE EVENT DATE: 20210607
